FAERS Safety Report 25504492 (Version 1)
Quarter: 2025Q3

REPORT INFORMATION
  Report Type: Spontaneous
  Country: CN (occurrence: CN)
  Receive Date: 20250702
  Receipt Date: 20250702
  Transmission Date: 20251021
  Serious: Yes (Hospitalization, Other)
  Sender: PFIZER
  Company Number: CN-PFIZER INC-PV202500077069

PATIENT
  Age: 79 Year
  Sex: Male
  Weight: 71.5 kg

DRUGS (8)
  1. EPIRUBICIN HYDROCHLORIDE [Suspect]
     Active Substance: EPIRUBICIN HYDROCHLORIDE
     Indication: Hodgkin^s disease
     Dosage: 65 MG, 1X/DAY (FIRST CYCLE, D1)
     Route: 041
     Dates: start: 20250411, end: 20250411
  2. EPIRUBICIN HYDROCHLORIDE [Suspect]
     Active Substance: EPIRUBICIN HYDROCHLORIDE
     Dosage: 65 MG, 1X/DAY (SECOND CYCLE, D1)
     Route: 041
     Dates: start: 20250507, end: 20250507
  3. CYCLOPHOSPHAMIDE [Suspect]
     Active Substance: CYCLOPHOSPHAMIDE
     Indication: Hodgkin^s disease
     Dosage: 0.74 G, 1X/DAY (FIRST CYCLE, D1)
     Route: 041
     Dates: start: 20250411, end: 20250411
  4. CYCLOPHOSPHAMIDE [Suspect]
     Active Substance: CYCLOPHOSPHAMIDE
     Dosage: 0.74 G, 1X/DAY (SECOND CYCLE, D1)
     Route: 041
     Dates: start: 20250507, end: 20250507
  5. VINDESINE SULFATE [Suspect]
     Active Substance: VINDESINE SULFATE
     Indication: Hodgkin^s disease
     Dosage: 4 MG, 1X/DAY (FIRST CYCLE, D1)
     Route: 041
     Dates: start: 20250411, end: 20250411
  6. VINDESINE SULFATE [Suspect]
     Active Substance: VINDESINE SULFATE
     Dosage: 4 MG, 1X/DAY (SECOND CYCLE, D1)
     Route: 041
     Dates: start: 20250507, end: 20250507
  7. PREDNISONE [Concomitant]
     Active Substance: PREDNISONE
     Indication: Hodgkin^s disease
     Dosage: 75 MG, 1X/DAY (FIRST CYCLE, D1-D5)
     Dates: start: 20250411, end: 20250415
  8. PREDNISONE [Concomitant]
     Active Substance: PREDNISONE
     Dosage: 75 MG, 1X/DAY (SECOND CYCLE, D1-D5)
     Dates: start: 20250507, end: 20250511

REACTIONS (5)
  - Agranulocytosis [Not Recovered/Not Resolved]
  - Haemoglobin decreased [Not Recovered/Not Resolved]
  - Back pain [Recovering/Resolving]
  - Decreased appetite [Recovering/Resolving]
  - Asthenia [Recovering/Resolving]

NARRATIVE: CASE EVENT DATE: 20250101
